FAERS Safety Report 7081150-0 (Version None)
Quarter: 2010Q4

REPORT INFORMATION
  Report Type: 
  Country: None (occurrence: None)
  Receive Date: 20101103
  Receipt Date: 20101025
  Transmission Date: 20110411
  Serious: Yes (Hospitalization)
  Sender: FDA-Public Use
  Company Number: B0680316A

PATIENT
  Age: 87 Year
  Sex: Female

DRUGS (1)
  1. VALTREX [Suspect]
     Indication: HERPES ZOSTER
     Dosage: 3000MG PER DAY
     Route: 048
     Dates: start: 20101013, end: 20101018

REACTIONS (3)
  - CONFUSIONAL STATE [None]
  - DYSARTHRIA [None]
  - VOMITING [None]
